FAERS Safety Report 4755445-7 (Version None)
Quarter: 2005Q3

REPORT INFORMATION
  Report Type: 
  Country: None (occurrence: None)
  Receive Date: 20050826
  Receipt Date: 20050826
  Transmission Date: 20060218
  Serious: Yes (Hospitalization)
  Sender: FDA-Public Use
  Company Number: None

PATIENT
  Age: 3 Year
  Sex: Male

DRUGS (5)
  1. PEGASPARGASE [Suspect]
     Indication: ACUTE LYMPHOCYTIC LEUKAEMIA
     Dosage: INTRAMUSCULAR ; 1625.0
     Route: 030
     Dates: start: 20050727, end: 20050727
  2. PEGASPARGASE [Suspect]
     Indication: B-CELL TYPE ACUTE LEUKAEMIA
     Dosage: INTRAMUSCULAR ; 1625.0
     Route: 030
     Dates: start: 20050727, end: 20050727
  3. ONCASPAR [Suspect]
  4. ENZON [Suspect]
  5. ANTINEOPLASTICS [Suspect]

REACTIONS (3)
  - COUGH [None]
  - URTICARIA [None]
  - VOMITING [None]
